FAERS Safety Report 19430793 (Version 1)
Quarter: 2021Q2

REPORT INFORMATION
  Report Type: Spontaneous
  Country: CA (occurrence: CA)
  Receive Date: 20210617
  Receipt Date: 20210617
  Transmission Date: 20210717
  Serious: Yes (Life-Threatening, Hospitalization, Other)
  Sender: FDA-Public Use
  Company Number: CA-PFIZER INC-2021649047

PATIENT
  Age: 57 Year
  Sex: Male

DRUGS (14)
  1. SOLU?MEDROL [Suspect]
     Active Substance: METHYLPREDNISOLONE SODIUM SUCCINATE
     Dosage: 40 MG, CYCLIC (EVERY 8 HOURS)
     Route: 042
  2. ELIQUIS [Concomitant]
     Active Substance: APIXABAN
  3. EPIVAL [VALPROATE SODIUM] [Concomitant]
     Active Substance: VALPROATE SODIUM
  4. FOLIC ACID. [Concomitant]
     Active Substance: FOLIC ACID
  5. OLANZAPINE. [Concomitant]
     Active Substance: OLANZAPINE
  6. TYLENOL [Concomitant]
     Active Substance: ACETAMINOPHEN
  7. NORVASC [Concomitant]
     Active Substance: AMLODIPINE BESYLATE
  8. TAZOCIN [Concomitant]
     Active Substance: PIPERACILLIN SODIUM\TAZOBACTAM SODIUM
  9. LASIX [Concomitant]
     Active Substance: FUROSEMIDE
  10. ASPIRIN [ACETYLSALICYLIC ACID] [Concomitant]
     Active Substance: ASPIRIN
  11. DILAUDID [Concomitant]
     Active Substance: HYDROMORPHONE HYDROCHLORIDE
  12. METOPROLOL. [Concomitant]
     Active Substance: METOPROLOL
     Indication: CHRONIC OBSTRUCTIVE PULMONARY DISEASE
     Route: 065
  13. PANTOLOC [PANTOPRAZOLE] [Concomitant]
     Active Substance: PANTOPRAZOLE SODIUM
  14. VITAMIN B1 [Concomitant]
     Active Substance: THIAMINE HYDROCHLORIDE

REACTIONS (3)
  - Diverticular perforation [Unknown]
  - Diverticulitis Meckel^s [Unknown]
  - Peritonitis [Unknown]
